FAERS Safety Report 23616254 (Version 2)
Quarter: 2024Q3

REPORT INFORMATION
  Report Type: Spontaneous
  Country: US (occurrence: US)
  Receive Date: 20240311
  Receipt Date: 20240830
  Transmission Date: 20241017
  Serious: Yes (Disabling, Other)
  Sender: AMGEN
  Company Number: US-HORIZON THERAPEUTICS-HZN-2024-002755

PATIENT
  Age: 55 Year
  Sex: Female

DRUGS (10)
  1. TEPEZZA [Suspect]
     Active Substance: TEPROTUMUMAB-TRBW
     Indication: Endocrine ophthalmopathy
     Dosage: 10 MILLIGRAM/KILOGRAM (FIRST INFUSION)
     Route: 042
     Dates: start: 20210218
  2. TEPEZZA [Suspect]
     Active Substance: TEPROTUMUMAB-TRBW
     Indication: Graves^ disease
     Dosage: 20 MILLIGRAM/KILOGRAM (1272MG/ 25.4 ML) SECOND INFUSION
     Route: 042
     Dates: start: 20210607
  3. TEPEZZA [Suspect]
     Active Substance: TEPROTUMUMAB-TRBW
     Dosage: 20 MILLIGRAM/KILOGRAM (1266MG/ 25.3 ML) THIRD INFUSION
     Route: 042
     Dates: start: 20210620
  4. TEPEZZA [Suspect]
     Active Substance: TEPROTUMUMAB-TRBW
     Dosage: 20 MILLIGRAM PER MILLILITRE (1254MG/ 25 ML) FOURTH INFUSION
     Route: 042
     Dates: start: 20210719
  5. TEPEZZA [Suspect]
     Active Substance: TEPROTUMUMAB-TRBW
     Dosage: 20 MILLIGRAM/KILOGRAM (1246MG/ 24.9 ML) FIFTH INFUSION
     Route: 042
     Dates: start: 20210809
  6. TEPEZZA [Suspect]
     Active Substance: TEPROTUMUMAB-TRBW
     Dosage: 20 MILLIGRAM/KILOGRAM (1262 MG/ 25.2 ML) SIXTH INFUSION
     Route: 042
     Dates: start: 20210830
  7. TEPEZZA [Suspect]
     Active Substance: TEPROTUMUMAB-TRBW
     Dosage: 20 MILLIGRAM/KILOGRAM (1240MG/ 24.8 ML) SEVENTH INFUSION
     Route: 042
     Dates: start: 20210920
  8. TEPEZZA [Suspect]
     Active Substance: TEPROTUMUMAB-TRBW
     Dosage: 20 MILLIGRAM/KILOGRAM (1234MG/24.7ML) EIGHTH INFUSION
     Route: 042
     Dates: start: 20211011
  9. ZOFRAN [Concomitant]
     Active Substance: ONDANSETRON HYDROCHLORIDE
     Dosage: 4 MILLIGRAM
     Route: 065
  10. MECLIZINE [Concomitant]
     Active Substance: MECLIZINE HYDROCHLORIDE
     Dosage: UNK
     Route: 065

REACTIONS (9)
  - Deafness neurosensory [Unknown]
  - Endocrine ophthalmopathy [Not Recovered/Not Resolved]
  - Graves^ disease [Not Recovered/Not Resolved]
  - Emotional distress [Not Recovered/Not Resolved]
  - Anxiety [Not Recovered/Not Resolved]
  - Vertigo [Unknown]
  - Fall [Unknown]
  - Oscillopsia [Unknown]
  - Nystagmus [Unknown]

NARRATIVE: CASE EVENT DATE: 20230906
